FAERS Safety Report 12407851 (Version 3)
Quarter: 2016Q3

REPORT INFORMATION
  Report Type: Spontaneous
  Country: US (occurrence: US)
  Receive Date: 20160526
  Receipt Date: 20160707
  Transmission Date: 20161109
  Serious: Yes (Hospitalization)
  Sender: FDA-Public Use
  Company Number: US-ALLERGAN-1652417US

PATIENT
  Age: 99 Year
  Sex: Male

DRUGS (1)
  1. LUMIGAN [Suspect]
     Active Substance: BIMATOPROST
     Indication: GLAUCOMA
     Dosage: 1 GTT, QD
     Route: 047
     Dates: start: 2000

REACTIONS (7)
  - Head injury [Unknown]
  - Blindness transient [Recovered/Resolved]
  - Visual acuity reduced [Unknown]
  - Fall [Recovering/Resolving]
  - Dizziness [Not Recovered/Not Resolved]
  - Skin injury [Recovering/Resolving]
  - Nasopharyngitis [Not Recovered/Not Resolved]

NARRATIVE: CASE EVENT DATE: 201511
